FAERS Safety Report 10496088 (Version 3)
Quarter: 2015Q3

REPORT INFORMATION
  Report Type: Spontaneous
  Country: FR (occurrence: FR)
  Receive Date: 20141003
  Receipt Date: 20150706
  Transmission Date: 20151125
  Serious: Yes (Death, Congenital Anomaly, Other)
  Sender: FDA-Public Use
  Company Number: FR-ABBVIE-12P-056-0910590-00

PATIENT

DRUGS (1)
  1. DEPAKENE [Suspect]
     Active Substance: VALPROIC ACID
     Indication: MATERNAL EXPOSURE TIMING UNSPECIFIED
     Dosage: DAILY
     Route: 064

REACTIONS (3)
  - Abortion spontaneous [Fatal]
  - Cytogenetic abnormality [Fatal]
  - Foetal exposure during pregnancy [Unknown]
